FAERS Safety Report 15487871 (Version 4)
Quarter: 2019Q3

REPORT INFORMATION
  Report Type: Spontaneous
  Country: JP (occurrence: JP)
  Receive Date: 20181011
  Receipt Date: 20190814
  Transmission Date: 20191004
  Serious: Yes (Other)
  Sender: FDA-Public Use
  Company Number: JP-SA-2018SA273586

PATIENT
  Age: 71 Year
  Sex: Male

DRUGS (3)
  1. TAXOTERE [Suspect]
     Active Substance: DOCETAXEL
     Indication: PROSTATE CANCER
     Dosage: UNK
     Route: 041
     Dates: start: 201711
  2. DENOSUMAB [Concomitant]
     Active Substance: DENOSUMAB
     Indication: METASTASES TO BONE
     Dosage: UNK
     Route: 065
  3. ENZALUTAMIDE [Concomitant]
     Active Substance: ENZALUTAMIDE
     Indication: PROSTATIC SPECIFIC ANTIGEN INCREASED
     Route: 065

REACTIONS (4)
  - Pyrexia [Recovering/Resolving]
  - Brain abscess [Recovering/Resolving]
  - Liver abscess [Recovering/Resolving]
  - Muscular weakness [Recovering/Resolving]
